FAERS Safety Report 5739728-X (Version None)
Quarter: 2008Q2

REPORT INFORMATION
  Report Type: 
  Country: None (occurrence: None)
  Receive Date: 20080512
  Receipt Date: 20080512
  Transmission Date: 20081010
  Serious: Yes (Hospitalization)
  Sender: FDA-Public Use
  Company Number: None

PATIENT
  Age: 84 Year
  Sex: Male

DRUGS (5)
  1. SPIRONOLACTONE [Suspect]
     Indication: BLOOD PRESSURE
     Dosage: 50MG BID PO
     Route: 048
  2. METOLAZONE [Suspect]
     Indication: BLOOD PRESSURE
     Dosage: 5MG BID PO
     Route: 048
  3. BENAZEPRIL HYDROCHLORIDE [Suspect]
     Indication: BLOOD PRESSURE
     Dosage: 20MG DAILY PO
     Route: 048
  4. BENAZEPRIL HYDROCHLORIDE [Suspect]
     Indication: URINARY TRACT INFECTION
     Dosage: 20MG DAILY PO
     Route: 048
  5. SULFAMETHOXAZOLE AND TRIMETHOPRIM [Suspect]
     Indication: URINARY TRACT INFECTION
     Dosage: 20MG DAILY PO
     Route: 048

REACTIONS (5)
  - DEHYDRATION [None]
  - FATIGUE [None]
  - HYPERKALAEMIA [None]
  - ORAL INTAKE REDUCED [None]
  - RENAL FAILURE ACUTE [None]
